FAERS Safety Report 12765705 (Version 3)
Quarter: 2019Q1

REPORT INFORMATION
  Report Type: Spontaneous
  Country: US (occurrence: US)
  Receive Date: 20160921
  Receipt Date: 20190114
  Transmission Date: 20190417
  Serious: Yes (Hospitalization, Other)
  Sender: FDA-Public Use
  Company Number: US-JNJFOC-20160906106

PATIENT
  Age: 73 Year
  Sex: Female

DRUGS (19)
  1. XARELTO [Suspect]
     Active Substance: RIVAROXABAN
     Indication: CEREBROVASCULAR ACCIDENT PROPHYLAXIS
     Route: 048
     Dates: start: 20140501
  2. XARELTO [Suspect]
     Active Substance: RIVAROXABAN
     Indication: ANTICOAGULANT THERAPY
     Route: 048
     Dates: start: 20140501
  3. XARELTO [Suspect]
     Active Substance: RIVAROXABAN
     Indication: CORONARY ARTERIAL STENT INSERTION
     Route: 048
     Dates: start: 201405, end: 20140902
  4. XARELTO [Suspect]
     Active Substance: RIVAROXABAN
     Indication: ATRIAL FIBRILLATION
     Route: 048
     Dates: start: 20140501
  5. XARELTO [Suspect]
     Active Substance: RIVAROXABAN
     Indication: CORONARY ARTERIAL STENT INSERTION
     Route: 048
     Dates: start: 20140501
  6. XARELTO [Suspect]
     Active Substance: RIVAROXABAN
     Indication: CARDIOMYOPATHY
     Route: 048
     Dates: start: 201405, end: 20140902
  7. XARELTO [Suspect]
     Active Substance: RIVAROXABAN
     Indication: MYOCARDIAL INFARCTION
     Route: 048
     Dates: start: 201405, end: 20140902
  8. PLAVIX [Suspect]
     Active Substance: CLOPIDOGREL BISULFATE
     Indication: MYOCARDIAL INFARCTION
     Route: 065
     Dates: end: 201409
  9. XARELTO [Suspect]
     Active Substance: RIVAROXABAN
     Indication: CEREBROVASCULAR ACCIDENT PROPHYLAXIS
     Route: 048
     Dates: start: 201405, end: 20140902
  10. PLAVIX [Suspect]
     Active Substance: CLOPIDOGREL BISULFATE
     Indication: ANTICOAGULANT THERAPY
     Route: 065
     Dates: end: 201409
  11. XARELTO [Suspect]
     Active Substance: RIVAROXABAN
     Indication: CARDIOMYOPATHY
     Route: 048
     Dates: start: 20140501
  12. ASPIRIN. [Suspect]
     Active Substance: ASPIRIN
     Indication: PRODUCT USED FOR UNKNOWN INDICATION
     Route: 048
  13. PLAVIX [Suspect]
     Active Substance: CLOPIDOGREL BISULFATE
     Indication: CORONARY ARTERIAL STENT INSERTION
     Route: 065
     Dates: end: 201409
  14. XARELTO [Suspect]
     Active Substance: RIVAROXABAN
     Indication: ATRIAL FIBRILLATION
     Route: 048
     Dates: start: 201405, end: 20140902
  15. TYLENOL PM [Suspect]
     Active Substance: ACETAMINOPHEN\DIPHENHYDRAMINE
     Indication: PRODUCT USED FOR UNKNOWN INDICATION
     Route: 048
  16. CLOPIDOGREL [Suspect]
     Active Substance: CLOPIDOGREL BISULFATE
     Indication: PRODUCT USED FOR UNKNOWN INDICATION
     Route: 048
     Dates: end: 201409
  17. XARELTO [Suspect]
     Active Substance: RIVAROXABAN
     Indication: MYOCARDIAL INFARCTION
     Route: 048
     Dates: start: 20140501
  18. XARELTO [Suspect]
     Active Substance: RIVAROXABAN
     Indication: ANTICOAGULANT THERAPY
     Route: 048
     Dates: start: 201405, end: 20140902
  19. PLAVIX [Suspect]
     Active Substance: CLOPIDOGREL BISULFATE
     Indication: CARDIOMYOPATHY
     Route: 065
     Dates: end: 201409

REACTIONS (3)
  - Traumatic haemorrhage [Unknown]
  - Cerebral haemorrhage [Recovering/Resolving]
  - Epistaxis [Unknown]

NARRATIVE: CASE EVENT DATE: 201409
